FAERS Safety Report 7508655-X (Version None)
Quarter: 2011Q2

REPORT INFORMATION
  Report Type: 
  Country: None (occurrence: None)
  Receive Date: 20110527
  Receipt Date: 20100422
  Transmission Date: 20111010
  Serious: No
  Sender: FDA-Public Use
  Company Number: A0856951A

PATIENT
  Age: 10 Year
  Sex: Male

DRUGS (1)
  1. VENTOLIN [Suspect]
     Indication: SEASONAL ALLERGY
     Route: 055

REACTIONS (4)
  - COUGH [None]
  - INHALATION THERAPY [None]
  - CONDITION AGGRAVATED [None]
  - DRUG INEFFECTIVE [None]
